FAERS Safety Report 9151716 (Version 2)
Quarter: 2013Q2

REPORT INFORMATION
  Report Type: Report from Study
  Country: US (occurrence: US)
  Receive Date: 20130308
  Receipt Date: 20130417
  Transmission Date: 20140414
  Serious: No
  Sender: FDA-Public Use
  Company Number: US-ABBOTT-13P-163-1056801-00

PATIENT
  Sex: Female

DRUGS (8)
  1. HUMIRA [Suspect]
     Indication: COLITIS ULCERATIVE
     Dates: start: 20130208
  2. HUMIRA [Suspect]
     Dates: start: 20130222
  3. ASACOL [Concomitant]
     Indication: COLITIS ULCERATIVE
     Dosage: 6/DAY
  4. CANASA [Concomitant]
     Indication: MIGRAINE
  5. OMEPRAZOLE [Concomitant]
     Indication: GASTROOESOPHAGEAL REFLUX DISEASE
  6. PROPRANOLOL [Concomitant]
     Indication: MIGRAINE
  7. FLUOXETINE [Concomitant]
     Indication: DEPRESSION
  8. IRON OTC [Concomitant]
     Indication: ANAEMIA

REACTIONS (6)
  - Drug ineffective [Unknown]
  - Rectal haemorrhage [Unknown]
  - Nausea [Unknown]
  - Vomiting [Unknown]
  - Weight decreased [Unknown]
  - Urinary tract infection [Unknown]
